FAERS Safety Report 6934088-0 (Version None)
Quarter: 2010Q3

REPORT INFORMATION
  Report Type: 
  Country: None (occurrence: None)
  Receive Date: 20100820
  Receipt Date: 20100813
  Transmission Date: 20110219
  Serious: Yes (Other)
  Sender: FDA-Public Use
  Company Number: US-PURDUE-USA-2010-0045673

PATIENT
  Age: 82 Year
  Sex: Female
  Weight: 70.75 kg

DRUGS (13)
  1. OXYCODONE HCL [Suspect]
     Indication: PAIN
     Dosage: 5 MG, BID
  2. OXYCODONE HCL [Suspect]
     Indication: POLYARTHRITIS
  3. LYRICA [Suspect]
     Indication: NEURALGIA
     Dosage: UNK
     Dates: start: 20100501
  4. LYRICA [Suspect]
     Indication: HERPES ZOSTER
  5. SYNTHROID [Concomitant]
     Indication: HYPOTHYROIDISM
     Dosage: 125 MCG, DAILY
  6. SINGULAIR [Concomitant]
     Indication: ASTHMA
     Dosage: 10 UNK, UNK
  7. ASPIRIN [Concomitant]
     Indication: CARDIOVASCULAR EVENT PROPHYLAXIS
     Dosage: 81 MG, UNK
  8. ASPIRIN [Concomitant]
     Indication: THROMBOSIS PROPHYLAXIS
  9. ICAPS [Concomitant]
     Indication: MACULAR DEGENERATION
     Dosage: UNK
  10. NEXIUM [Concomitant]
     Indication: GASTROOESOPHAGEAL REFLUX DISEASE
     Dosage: 40 MG, DAILY
  11. CARDIZEM [Concomitant]
     Indication: EXTRASYSTOLES
     Dosage: 240 MG, UNK
     Dates: start: 20090601
  12. FLUOXETINE HCL [Concomitant]
     Indication: DEPRESSION
     Dosage: 20 MG, DAILY
  13. PRAVASTATIN [Concomitant]
     Indication: BLOOD CHOLESTEROL INCREASED
     Dosage: 20 MG, DAILY

REACTIONS (2)
  - DRUG INTERACTION [None]
  - HALLUCINATION [None]
